FAERS Safety Report 6798370-2 (Version None)
Quarter: 2010Q2

REPORT INFORMATION
  Report Type: 
  Country: None (occurrence: None)
  Receive Date: 20100622
  Receipt Date: 20100608
  Transmission Date: 20101027
  Serious: Yes (Hospitalization)
  Sender: FDA-Public Use
  Company Number: KV200800751

PATIENT
  Age: 49 Year
  Sex: Male
  Weight: 85.3 kg

DRUGS (6)
  1. MORPHINE SULFATE [Suspect]
     Indication: BACK PAIN
     Dosage: 15 MG, TID, ORAL
     Route: 048
     Dates: start: 20000730, end: 20080801
  2. AVINZA [Suspect]
     Indication: BACK PAIN
     Dosage: 30 MG, QD, ORAL
     Route: 048
     Dates: start: 20080730, end: 20080801
  3. VALIUM [Suspect]
  4. PAXIL [Concomitant]
  5. PRILOSEC [Concomitant]
  6. MOTRIN [Concomitant]

REACTIONS (23)
  - ACCIDENTAL OVERDOSE [None]
  - AFFECTIVE DISORDER [None]
  - ASTHENIA [None]
  - CHRONIC OBSTRUCTIVE PULMONARY DISEASE [None]
  - COUGH [None]
  - DIARRHOEA [None]
  - DYSPHAGIA [None]
  - DYSPNOEA [None]
  - HYPOTENSION [None]
  - HYPOVOLAEMIA [None]
  - LETHARGY [None]
  - LOSS OF CONSCIOUSNESS [None]
  - METABOLIC ACIDOSIS [None]
  - MYALGIA [None]
  - NAUSEA [None]
  - PNEUMONIA [None]
  - PNEUMONIA ASPIRATION [None]
  - RENAL FAILURE ACUTE [None]
  - RENAL TUBULAR NECROSIS [None]
  - RHABDOMYOLYSIS [None]
  - STRESS [None]
  - TACHYCARDIA [None]
  - TINNITUS [None]
